FAERS Safety Report 4636810-5 (Version None)
Quarter: 2005Q2

REPORT INFORMATION
  Report Type: 
  Country: None (occurrence: None)
  Receive Date: 20050414
  Receipt Date: 20050401
  Transmission Date: 20051028
  Serious: Yes (Hospitalization)
  Sender: FDA-Public Use
  Company Number: 2005054964

PATIENT
  Age: 64 Year
  Sex: Male

DRUGS (3)
  1. TOLTERODINE TARTRATE [Suspect]
     Indication: HYPERTONIC BLADDER
     Dosage: 4 MG (2 MG, 2 IN 1 D), ORAL
     Route: 048
     Dates: start: 20050328, end: 20050331
  2. HYOSCINE HBR HYT [Concomitant]
  3. ALLOTHER THERAPEUTIC PRODUCTS [Concomitant]

REACTIONS (1)
  - HYPERSENSITIVITY [None]
